FAERS Safety Report 5649798-5 (Version None)
Quarter: 2008Q1

REPORT INFORMATION
  Report Type: 
  Country: None (occurrence: None)
  Receive Date: 20080303
  Receipt Date: 20080221
  Transmission Date: 20080703
  Serious: Yes (Disabling, Other)
  Sender: FDA-Public Use
  Company Number: 2008SP000888

PATIENT
  Age: 37 Year
  Sex: Female
  Weight: 97.0698 kg

DRUGS (15)
  1. PEG-INTRON [Suspect]
     Indication: HEPATITIS C
     Dosage: 150 MCG; SC
     Route: 058
     Dates: start: 20071110
  2. RIBAVIRIN [Suspect]
     Indication: HEPATITIS C
     Dosage: 1200 MG; PO
     Route: 048
     Dates: start: 20071110
  3. NITROGLYCERIN (CON.) [Concomitant]
  4. LASEX (CON.) [Concomitant]
  5. MS CONTIN (CON.) [Concomitant]
  6. MSIR (CON.) [Concomitant]
  7. METOPROLOL (CON.) [Concomitant]
  8. PREDNISONE (CON.) [Concomitant]
  9. MOM (CON.) [Concomitant]
  10. PROAIR (CON.) [Concomitant]
  11. ALBUTEROL (CON.) [Concomitant]
  12. PRILOSEC (CON.) [Concomitant]
  13. LUNESTA (CON.) [Concomitant]
  14. PREDNISONE (CON.) [Concomitant]
  15. PHENERGAN (CON.) [Concomitant]

REACTIONS (4)
  - CHEST PAIN [None]
  - PITTING OEDEMA [None]
  - PURULENT DISCHARGE [None]
  - SKIN ULCER [None]
